FAERS Safety Report 20080141 (Version 1)
Quarter: 2021Q4

REPORT INFORMATION
  Report Type: Spontaneous
  Country: DE (occurrence: DE)
  Receive Date: 20211117
  Receipt Date: 20211117
  Transmission Date: 20220303
  Serious: Yes (Death, Other)
  Sender: FDA-Public Use
  Company Number: DE-NOVARTISPH-NVSC2021DE262222

PATIENT
  Sex: Male

DRUGS (2)
  1. DOCETAXEL [Suspect]
     Active Substance: DOCETAXEL
     Indication: Adenocarcinoma
     Dosage: UNK
     Route: 065
     Dates: start: 201801, end: 201803
  2. NINTEDANIB [Suspect]
     Active Substance: NINTEDANIB
     Indication: Adenocarcinoma
     Dosage: UNK
     Route: 065
     Dates: start: 201801, end: 201803

REACTIONS (2)
  - Death [Fatal]
  - Haematotoxicity [Unknown]

NARRATIVE: CASE EVENT DATE: 20200801
